FAERS Safety Report 20221617 (Version 1)
Quarter: 2021Q4

REPORT INFORMATION
  Report Type: Spontaneous
  Country: US (occurrence: None)
  Receive Date: 20211222
  Receipt Date: 20211222
  Transmission Date: 20220304
  Serious: Yes (Other)
  Sender: FDA-Public Use
  Company Number: None

PATIENT
  Age: 70 Year
  Sex: Male

DRUGS (6)
  1. EVEROLIMUS [Suspect]
     Active Substance: EVEROLIMUS
     Dates: start: 20210616
  2. ASPIRIN LOW TAB [Concomitant]
  3. FUROSEMIDE TAB [Concomitant]
  4. HYDRALAZINE TAB [Concomitant]
  5. SYNTHROID TAB [Concomitant]
  6. VITAMIN D CAP [Concomitant]

REACTIONS (1)
  - Colon operation [None]

NARRATIVE: CASE EVENT DATE: 20211222
